FAERS Safety Report 25842314 (Version 1)
Quarter: 2025Q3

REPORT INFORMATION
  Report Type: Spontaneous
  Country: EU (occurrence: EU)
  Receive Date: 20250924
  Receipt Date: 20250924
  Transmission Date: 20251021
  Serious: Yes (Other)
  Sender: BOEHRINGER INGELHEIM
  Company Number: EU-BoehringerIngelheim-2025-BI-096545

PATIENT
  Age: 50 Year
  Sex: Male

DRUGS (6)
  1. AFATINIB [Suspect]
     Active Substance: AFATINIB
     Indication: Glioblastoma
  2. AFATINIB [Suspect]
     Active Substance: AFATINIB
     Indication: EGFR gene mutation
  3. AFATINIB [Suspect]
     Active Substance: AFATINIB
  4. OSIMERTINIB [Suspect]
     Active Substance: OSIMERTINIB
     Indication: Glioblastoma
  5. OSIMERTINIB [Suspect]
     Active Substance: OSIMERTINIB
     Indication: EGFR gene mutation
  6. TEMOZOLOMIDE [Concomitant]
     Active Substance: TEMOZOLOMIDE
     Indication: Glioblastoma

REACTIONS (9)
  - Glioblastoma [Recovered/Resolved]
  - Recurrent cancer [Recovered/Resolved]
  - Off label use [Unknown]
  - Weight decreased [Recovered/Resolved]
  - Erythema [Recovering/Resolving]
  - Dry mouth [Unknown]
  - Oral disorder [Unknown]
  - Nail bed infection [Unknown]
  - Mucosal dryness [Unknown]

NARRATIVE: CASE EVENT DATE: 20220101
